FAERS Safety Report 5469649-1 (Version None)
Quarter: 2007Q3

REPORT INFORMATION
  Report Type: 
  Country: None (occurrence: None)
  Receive Date: 20070926
  Receipt Date: 20070926
  Transmission Date: 20080115
  Serious: Yes (Other)
  Sender: FDA-Public Use
  Company Number: None

PATIENT
  Sex: Female

DRUGS (1)
  1. MORPHINE [Suspect]
     Indication: PROCEDURAL PAIN
     Dosage: 1 MG Q 10 MIN, 2-4 MG X 1, 1-2 MG

REACTIONS (1)
  - RESPIRATORY DISTRESS [None]
